FAERS Safety Report 11860641 (Version 2)
Quarter: 2016Q1

REPORT INFORMATION
  Report Type: Spontaneous
  Country: DE (occurrence: DE)
  Receive Date: 20151222
  Receipt Date: 20160321
  Transmission Date: 20160526
  Serious: Yes (Other)
  Sender: FDA-Public Use
  Company Number: DE-ACORDA-ACO_120168_2015

PATIENT
  Sex: Female
  Weight: 70 kg

DRUGS (3)
  1. PREGABALIN. [Concomitant]
     Active Substance: PREGABALIN
     Indication: PRODUCT USED FOR UNKNOWN INDICATION
     Dosage: UNK
     Route: 065
     Dates: start: 20140128
  2. QUTENZA [Suspect]
     Active Substance: CAPSAICIN
     Indication: NEURALGIA
     Dosage: 3 PATCHES TO THE BACK
     Route: 061
     Dates: start: 20151123, end: 20151123
  3. HYDROMORPHONE [Concomitant]
     Active Substance: HYDROMORPHONE
     Indication: PRODUCT USED FOR UNKNOWN INDICATION
     Dosage: UNK
     Route: 065
     Dates: start: 20140128

REACTIONS (4)
  - Application site erythema [Not Recovered/Not Resolved]
  - Application site vesicles [Unknown]
  - Application site pain [Recovered/Resolved]
  - Burns second degree [Recovering/Resolving]

NARRATIVE: CASE EVENT DATE: 20151123
